FAERS Safety Report 7122198-7 (Version None)
Quarter: 2010Q4

REPORT INFORMATION
  Report Type: 
  Country: None (occurrence: None)
  Receive Date: 20101124
  Receipt Date: 20101110
  Transmission Date: 20110411
  Serious: Yes (Hospitalization)
  Sender: FDA-Public Use
  Company Number: GXKR2010US12699

PATIENT
  Age: 44 Year
  Sex: Female

DRUGS (4)
  1. VERAPAMIL [Suspect]
     Route: 065
  2. CLONAZEPAM [Concomitant]
     Route: 065
  3. ETHANOL [Concomitant]
     Route: 065
  4. OXYCODONE AND ACETAMINOPHEN [Concomitant]
     Route: 065

REACTIONS (8)
  - ENDOTRACHEAL INTUBATION [None]
  - HAEMODYNAMIC INSTABILITY [None]
  - HYPERGLYCAEMIA [None]
  - HYPOTENSION [None]
  - MENTAL DISORDER [None]
  - MYDRIASIS [None]
  - OVERDOSE [None]
  - SOMNOLENCE [None]
